FAERS Safety Report 7939921-1 (Version None)
Quarter: 2011Q4

REPORT INFORMATION
  Report Type: 
  Country: None (occurrence: None)
  Receive Date: 20111125
  Receipt Date: 20111118
  Transmission Date: 20120403
  Serious: Yes (Hospitalization)
  Sender: FDA-Public Use
  Company Number: DE-AMGEN-DEUSP2011061157

PATIENT
  Age: 70 Year
  Sex: Female

DRUGS (12)
  1. CINACALCET HYDROCHLORIDE [Suspect]
     Indication: HYPERPARATHYROIDISM
     Dosage: UNK
     Route: 065
  2. CORTISONE ACETATE [Concomitant]
  3. INDACATEROL [Concomitant]
  4. DILTIAZEM HCL [Concomitant]
     Dosage: 90 MG, UNK
  5. MIRTAZAPINE [Concomitant]
     Dosage: 30 MG, UNK
  6. OXAZEPAM [Concomitant]
     Dosage: 10 MG, UNK
  7. FOLIC ACID [Concomitant]
  8. NEURO-RATIOPHARM N [Concomitant]
  9. SPIRIVA [Concomitant]
  10. ALBUTEROL SULFATE [Concomitant]
  11. ZOLEDRONIC [Suspect]
     Indication: OSTEOPOROSIS
     Dosage: 5 MG, Q12MO
     Route: 042
     Dates: start: 20100531
  12. DEKRISTOL [Concomitant]

REACTIONS (5)
  - MUSCULAR WEAKNESS [None]
  - ANXIETY [None]
  - TACHYCARDIA [None]
  - VERTIGO [None]
  - ASTHENIA [None]
